FAERS Safety Report 24726969 (Version 1)
Quarter: 2024Q4

REPORT INFORMATION
  Report Type: Spontaneous
  Country: US (occurrence: None)
  Receive Date: 20241212
  Receipt Date: 20241212
  Transmission Date: 20250115
  Serious: Yes (Hospitalization)
  Sender: Public
  Company Number: None

PATIENT
  Age: 66 Year
  Sex: Female

DRUGS (4)
  1. ARANESP [Suspect]
     Active Substance: DARBEPOETIN ALFA
     Indication: Anaemia
     Dosage: OTHER STRENGTH : 60/1 UG/ML;?FREQUENCY : WEEKLY;?
     Route: 058
     Dates: start: 202405
  2. ARANESP [Suspect]
     Active Substance: DARBEPOETIN ALFA
     Indication: Chronic kidney disease
  3. TACROLIMUS (BIOCON) [Concomitant]
  4. MYCOPHENOLATE MOFETIL [Concomitant]
     Active Substance: MYCOPHENOLATE MOFETIL

REACTIONS (2)
  - Nausea [None]
  - Haematocrit decreased [None]

NARRATIVE: CASE EVENT DATE: 20241111
